FAERS Safety Report 25186251 (Version 1)
Quarter: 2025Q2

REPORT INFORMATION
  Report Type: Report from Study
  Country: US (occurrence: US)
  Receive Date: 20250410
  Receipt Date: 20250410
  Transmission Date: 20250716
  Serious: Yes (Other)
  Sender: ABBVIE
  Company Number: US-ABBVIE-6213611

PATIENT
  Age: 68 Year
  Sex: Male

DRUGS (1)
  1. HUMIRA [Suspect]
     Active Substance: ADALIMUMAB
     Indication: Crohn^s disease
     Route: 058
     Dates: start: 20130210

REACTIONS (8)
  - Wisdom teeth removal [Recovered/Resolved]
  - Skin laceration [Recovered/Resolved]
  - Shoulder operation [Recovered/Resolved]
  - Hip surgery [Recovered/Resolved]
  - Skin cancer [Recovered/Resolved]
  - Nephrolithiasis [Recovered/Resolved]
  - Pneumonia [Unknown]
  - Immunodeficiency [Unknown]

NARRATIVE: CASE EVENT DATE: 20190101
